FAERS Safety Report 8966106 (Version 1)
Quarter: 2012Q4

REPORT INFORMATION
  Report Type: 
  Country: AU (occurrence: AU)
  Receive Date: 20121217
  Receipt Date: 20121217
  Transmission Date: 20130627
  Serious: Yes (Hospitalization)
  Sender: FDA-Public Use
  Company Number: AU-AMGEN-AUSSP2012080263

PATIENT
  Age: 65 Year
  Sex: Female

DRUGS (10)
  1. PEGFILGRASTIM [Suspect]
     Indication: PRODUCT USED FOR UNKNOWN INDICATION
     Dosage: 6 mg, UNK
     Route: 058
     Dates: start: 20101218, end: 20101218
  2. PEGFILGRASTIM [Suspect]
     Dosage: 6 mg, UNK
     Route: 058
     Dates: start: 20110209
  3. MABTHERA [Suspect]
     Indication: B-CELL LYMPHOMA
     Dosage: 675 mg, 1 in 21 days
     Route: 042
     Dates: start: 20101021
  4. CYCLOPHOSPHAMIDE [Suspect]
     Indication: B-CELL LYMPHOMA
     Dosage: 1440 mg, 1 in 21 days
     Route: 042
     Dates: start: 20101028
  5. VINCRISTINE [Suspect]
     Indication: B-CELL LYMPHOMA
     Dosage: 2 mg, 1 in 21 days
     Route: 042
     Dates: start: 20101028
  6. PREDNISOLONE [Suspect]
     Indication: B-CELL LYMPHOMA
     Dosage: 90 mg, on days 1 and 5 of 21 day cycle
     Route: 048
     Dates: start: 20101028
  7. GRANISETRON [Concomitant]
     Dosage: 2 mg, UNK
     Dates: start: 20101217, end: 20101219
  8. ESOMEPRAZOLE [Concomitant]
     Dosage: 80 mg, UNK
     Dates: start: 20101217
  9. APREPITANT [Concomitant]
     Dosage: 80 mg, UNK
     Dates: start: 20101218, end: 20101220
  10. DOXYCYCLINE [Concomitant]
     Dosage: 100 mg, UNK
     Dates: start: 20101217, end: 20101222

REACTIONS (6)
  - Chest pain [Recovered/Resolved]
  - Dyspnoea [Recovered/Resolved]
  - Tremor [Unknown]
  - Malaise [Unknown]
  - Hypocalcaemia [Recovered/Resolved]
  - Diarrhoea [Recovered/Resolved]
